FAERS Safety Report 7966160-0 (Version None)
Quarter: 2011Q4

REPORT INFORMATION
  Report Type: 
  Country: None (occurrence: None)
  Receive Date: 20111208
  Receipt Date: 20111206
  Transmission Date: 20120403
  Serious: Yes (Other)
  Sender: FDA-Public Use
  Company Number: US-PFIZER INC-2011236844

PATIENT
  Sex: Female
  Weight: 92.971 kg

DRUGS (9)
  1. VERAMYST [Concomitant]
     Dosage: UNK
  2. VITAMIN D [Concomitant]
     Dosage: UNK
  3. TRIAMCINOLONE [Concomitant]
     Dosage: UNK
  4. SYNTHROID [Concomitant]
     Indication: THYROID DISORDER
     Dosage: UNK
  5. PRISTIQ [Suspect]
     Indication: MAJOR DEPRESSION
     Dosage: 50 MG, 1X/DAY
     Route: 048
     Dates: start: 20110923, end: 20111014
  6. CYTOMEL [Concomitant]
     Indication: THYROID DISORDER
     Dosage: UNK
     Route: 048
  7. VITAMIN E [Concomitant]
     Dosage: UNK
  8. PRILOSEC [Concomitant]
     Dosage: UNK
  9. XANAX [Concomitant]
     Indication: ANXIETY
     Dosage: UNK
     Dates: start: 20110923

REACTIONS (4)
  - TREMOR [None]
  - THYROID FUNCTION TEST ABNORMAL [None]
  - ANXIETY [None]
  - AGITATION [None]
